FAERS Safety Report 23461286 (Version 2)
Quarter: 2024Q1

REPORT INFORMATION
  Report Type: Spontaneous
  Country: JP (occurrence: JP)
  Receive Date: 20240131
  Receipt Date: 20240227
  Transmission Date: 20240410
  Serious: Yes (Hospitalization)
  Sender: FDA-Public Use
  Company Number: JP-TEVA-VS-3150110

PATIENT
  Age: 27 Year
  Sex: Female

DRUGS (5)
  1. ARIPIPRAZOLE [Suspect]
     Active Substance: ARIPIPRAZOLE
     Indication: Depression
     Route: 065
  2. ARIPIPRAZOLE [Suspect]
     Active Substance: ARIPIPRAZOLE
     Indication: Depression
     Route: 065
  3. DULOXETINE [Suspect]
     Active Substance: DULOXETINE
     Indication: Depression
     Route: 065
  4. BENZETHONIUM CHLORIDE\CHLORPHENIRAMINE MALEATE\DIBUCAINE HYDROCHLORIDE [Suspect]
     Active Substance: BENZETHONIUM CHLORIDE\CHLORPHENIRAMINE MALEATE\DIBUCAINE HYDROCHLORIDE\NAPHAZOLINE HYDROCHLORIDE
     Indication: Intentional overdose
     Dosage: SHE HAD TAKEN THREE BOTTLES OF ANTISEPTIC FIRST-AID LIQUID. EACH OF THE THREE 80ML BOTTLE CONTAIN...
     Route: 065
  5. FLUNITRAZEPAM [Concomitant]
     Active Substance: FLUNITRAZEPAM
     Route: 065

REACTIONS (15)
  - Toxicity to various agents [Recovering/Resolving]
  - Altered state of consciousness [Recovering/Resolving]
  - Left ventricular dysfunction [Recovered/Resolved]
  - Pulmonary oedema [Recovered/Resolved]
  - Myocarditis [Recovering/Resolving]
  - Myocardial necrosis [Unknown]
  - Suicide attempt [Recovering/Resolving]
  - Myocardial fibrosis [Unknown]
  - Ventricular tachycardia [Recovered/Resolved]
  - Breath sounds abnormal [Unknown]
  - Electrocardiogram QT prolonged [Recovering/Resolving]
  - Asthenia [Recovering/Resolving]
  - Renal impairment [Unknown]
  - Cyanosis [Unknown]
  - Intentional overdose [Recovering/Resolving]
